FAERS Safety Report 23873427 (Version 1)
Quarter: 2024Q2

REPORT INFORMATION
  Report Type: Spontaneous
  Country: US (occurrence: US)
  Receive Date: 20240520
  Receipt Date: 20240520
  Transmission Date: 20240716
  Serious: No
  Sender: FDA-Public Use
  Company Number: US-BAYER-2024A071172

PATIENT
  Sex: Female

DRUGS (2)
  1. MIRALAX [Suspect]
     Active Substance: POLYETHYLENE GLYCOL 3350
     Indication: Gastrointestinal disorder
     Dosage: 17 GRAMS DOSE
     Route: 048
  2. SODIUM PICOSULFATE [Concomitant]
     Active Substance: SODIUM PICOSULFATE

REACTIONS (1)
  - Drug ineffective [Unknown]
